FAERS Safety Report 6441845-6 (Version None)
Quarter: 2009Q4

REPORT INFORMATION
  Report Type: 
  Country: None (occurrence: None)
  Receive Date: 20091116
  Receipt Date: 20091104
  Transmission Date: 20100525
  Serious: Yes (Other)
  Sender: FDA-Public Use
  Company Number: DE-PFIZER INC-2009277978

PATIENT
  Age: 35 Year
  Sex: Male
  Weight: 75 kg

DRUGS (3)
  1. CELSENTRI [Suspect]
     Indication: HIV INFECTION
     Dosage: 150 MG, 1X/DAY
     Route: 048
     Dates: start: 20090805
  2. ATAZANAVIR [Concomitant]
     Indication: HIV INFECTION
     Dosage: 300 MG, 1X/DAY
     Route: 048
     Dates: start: 20090805
  3. NORVIR [Concomitant]
     Indication: HIV INFECTION
     Dosage: 100 MG, 1X/DAY
     Route: 048
     Dates: start: 20090805

REACTIONS (6)
  - ASTHENIA [None]
  - BODY TEMPERATURE INCREASED [None]
  - BRONCHITIS [None]
  - HERPES ZOSTER [None]
  - INFECTION SUSCEPTIBILITY INCREASED [None]
  - URINARY TRACT INFECTION [None]
